FAERS Safety Report 15235272 (Version 1)
Quarter: 2018Q3

REPORT INFORMATION
  Report Type: Spontaneous
  Country: US (occurrence: US)
  Receive Date: 20180709
  Receipt Date: 20180709
  Transmission Date: 20181010
  Serious: Yes (Disabling, Other)
  Sender: FDA-Public Use
  Company Number: None

PATIENT
  Age: 61 Year
  Sex: Female
  Weight: 166.05 kg

DRUGS (13)
  1. PROPAFENONE. [Concomitant]
     Active Substance: PROPAFENONE
  2. VITAMIN D [Concomitant]
     Active Substance: CHOLECALCIFEROL
  3. OMEPRAZOLE. [Concomitant]
     Active Substance: OMEPRAZOLE
  4. METOPROLOL. [Concomitant]
     Active Substance: METOPROLOL
  5. CALCIUM [Concomitant]
     Active Substance: CALCIUM
  6. BUSPIRONE [Concomitant]
     Active Substance: BUSPIRONE HYDROCHLORIDE
  7. SPIRONOLACTONE. [Concomitant]
     Active Substance: SPIRONOLACTONE
  8. MELOXICAM. [Concomitant]
     Active Substance: MELOXICAM
  9. BIOTIN [Concomitant]
     Active Substance: BIOTIN
  10. MAGNESIUM [Concomitant]
     Active Substance: MAGNESIUM
  11. ZINC. [Concomitant]
     Active Substance: ZINC
  12. ELIQUIS [Suspect]
     Active Substance: APIXABAN
     Indication: ATRIAL FIBRILLATION
     Dosage: ?          QUANTITY:1 TABLET(S);?
     Route: 048
  13. SYNTHROID [Concomitant]
     Active Substance: LEVOTHYROXINE SODIUM

REACTIONS (6)
  - Arthropathy [None]
  - Arthralgia [None]
  - Bursitis [None]
  - Femoroacetabular impingement [None]
  - Arthritis [None]
  - Musculoskeletal pain [None]

NARRATIVE: CASE EVENT DATE: 20170301
